FAERS Safety Report 5279980-0 (Version None)
Quarter: 2007Q1

REPORT INFORMATION
  Report Type: 
  Country: None (occurrence: None)
  Receive Date: 20070329
  Receipt Date: 20070319
  Transmission Date: 20070707
  Serious: Yes (Other)
  Sender: FDA-Public Use
  Company Number: US-PURDUE-USA_2007_0026759

PATIENT
  Age: 51 Year
  Sex: Male

DRUGS (4)
  1. OXYCODONE HCL CR TABLETS (SIMILAR TO NDA 20-553) [Suspect]
     Indication: ARTHRALGIA
     Dosage: 40 MG, BID
     Dates: start: 20060101
  2. OXYCODONE HCL CR TABLETS (SIMILAR TO NDA 20-553) [Suspect]
     Dosage: 40 MG, SEE TEXT
     Dates: end: 20070101
  3. OXYIR CAPSULES 5 MG [Concomitant]
     Indication: PAIN
     Dosage: 15 MG, PM
     Dates: start: 20060101, end: 20070101
  4. HYDROCODONE [Concomitant]
     Indication: ARTHRALGIA
     Dosage: 7.5 MG, Q4H PRN
     Dates: start: 20060901, end: 20061001

REACTIONS (5)
  - ARTHRALGIA [None]
  - DRUG EFFECT INCREASED [None]
  - JOINT INJURY [None]
  - LOSS OF CONSCIOUSNESS [None]
  - PRE-EXISTING CONDITION IMPROVED [None]
